FAERS Safety Report 5829740-4 (Version None)
Quarter: 2008Q3

REPORT INFORMATION
  Report Type: 
  Country: None (occurrence: None)
  Receive Date: 20080729
  Receipt Date: 20080718
  Transmission Date: 20090109
  Serious: Yes (Hospitalization)
  Sender: FDA-Public Use
  Company Number: 2008BI011231

PATIENT
  Age: 42 Year
  Sex: Female
  Weight: 45.3597 kg

DRUGS (2)
  1. AVONEX [Suspect]
     Indication: MULTIPLE SCLEROSIS
     Dosage: 30 UG;QW;IM; 15 UG;QW;IM
     Route: 030
     Dates: start: 20080125, end: 20080413
  2. AVONEX [Suspect]
     Indication: MULTIPLE SCLEROSIS
     Dosage: 30 UG;QW;IM; 15 UG;QW;IM
     Route: 030
     Dates: start: 20080413, end: 20080502

REACTIONS (6)
  - CONDITION AGGRAVATED [None]
  - IMMUNE SYSTEM DISORDER [None]
  - MULTIPLE SCLEROSIS [None]
  - NAUSEA [None]
  - VITAMIN D DECREASED [None]
  - VOMITING [None]
